FAERS Safety Report 9408365 (Version 1)
Quarter: 2013Q3

REPORT INFORMATION
  Report Type: Spontaneous
  Country: FR (occurrence: None)
  Receive Date: 20130716
  Receipt Date: 20130716
  Transmission Date: 20140515
  Serious: Yes (Hospitalization)
  Sender: FDA-Public Use
  Company Number: 1745197

PATIENT
  Age: 50 Year
  Sex: Female

DRUGS (8)
  1. CARBOPLATIN [Suspect]
     Indication: RECTAL CANCER
     Route: 042
     Dates: start: 20110621, end: 20110621
  2. PACLITAXEL SANDOZ [Suspect]
     Indication: RECTAL CANCER
     Route: 042
     Dates: start: 20110621, end: 20110621
  3. KYTRIL [Suspect]
     Indication: PREMEDICATION
     Route: 042
     Dates: start: 20110621, end: 20110621
  4. METOCLOPRAMIDE [Suspect]
     Indication: PREMEDICATION
     Route: 042
     Dates: start: 20110621, end: 20110621
  5. METHYLPREDNISOLONE [Suspect]
     Indication: PREMEDICATION
     Route: 042
     Dates: start: 20110621, end: 20110621
  6. AZANTAC [Suspect]
     Indication: PREMEDICATION
     Route: 042
     Dates: start: 20110621, end: 20110621
  7. EMEND [Suspect]
     Indication: PREMEDICATION
     Route: 048
     Dates: start: 20110621, end: 20110621
  8. AERIUS [Suspect]
     Indication: PREMEDICATION
     Route: 048
     Dates: start: 20110621, end: 20110621

REACTIONS (6)
  - Hyperhidrosis [None]
  - Abdominal pain [None]
  - Nausea [None]
  - Vomiting [None]
  - Hypotension [None]
  - Malaise [None]
